FAERS Safety Report 23131603 (Version 2)
Quarter: 2025Q2

REPORT INFORMATION
  Report Type: Spontaneous
  Country: HR (occurrence: HR)
  Receive Date: 20231031
  Receipt Date: 20250629
  Transmission Date: 20250717
  Serious: Yes (Other)
  Sender: SANDOZ
  Company Number: HR-TEVA-2023-HR-2901278

PATIENT
  Age: 71 Year
  Sex: Male

DRUGS (3)
  1. CYCLOPHOSPHAMIDE [Suspect]
     Active Substance: CYCLOPHOSPHAMIDE
     Indication: Chronic lymphocytic leukaemia
     Route: 065
     Dates: start: 2019
  2. FLUDARABINE [Suspect]
     Active Substance: FLUDARABINE PHOSPHATE
     Indication: Chronic lymphocytic leukaemia
     Route: 065
     Dates: start: 2019
  3. RITUXIMAB [Suspect]
     Active Substance: RITUXIMAB
     Indication: Chronic lymphocytic leukaemia
     Route: 065
     Dates: start: 2019

REACTIONS (1)
  - Lung adenocarcinoma [Unknown]

NARRATIVE: CASE EVENT DATE: 20190101
